FAERS Safety Report 6283237-9 (Version None)
Quarter: 2009Q3

REPORT INFORMATION
  Report Type: 
  Country: None (occurrence: None)
  Receive Date: 20090724
  Receipt Date: 20090715
  Transmission Date: 20100115
  Serious: Yes (Hospitalization)
  Sender: FDA-Public Use
  Company Number: US-JNJFOC-20090706227

PATIENT
  Sex: Female
  Weight: 72.12 kg

DRUGS (5)
  1. INFLIXIMAB [Suspect]
     Indication: CROHN'S DISEASE
     Route: 042
  2. PREDNISONE TAB [Concomitant]
  3. ANTIBIOTICS [Concomitant]
  4. DOXYCYCLINE [Concomitant]
  5. CEFTRIAXONE [Concomitant]

REACTIONS (1)
  - PELVIC INFLAMMATORY DISEASE [None]
